FAERS Safety Report 6329998-1 (Version None)
Quarter: 2009Q3

REPORT INFORMATION
  Report Type: 
  Country: None (occurrence: None)
  Receive Date: 20090825
  Receipt Date: 20090812
  Transmission Date: 20100115
  Serious: Yes (Other)
  Sender: FDA-Public Use
  Company Number: MOZO-1000201

PATIENT
  Age: 31 Year
  Sex: Male
  Weight: 82 kg

DRUGS (2)
  1. MOZOBIL [Suspect]
     Indication: BURKITT'S LYMPHOMA
     Dosage: 21024 MCG, QD
     Dates: start: 20080922, end: 20080922
  2. MOZOBIL [Suspect]
     Indication: HAEMATOPOIETIC STEM CELL MOBILISATION
     Dosage: 21024 MCG, QD
     Dates: start: 20080922, end: 20080922

REACTIONS (3)
  - ANAEMIA [None]
  - BLOOD STEM CELL TRANSPLANT FAILURE [None]
  - FEBRILE NEUTROPENIA [None]
